FAERS Safety Report 4483502-1 (Version None)
Quarter: 2004Q4

REPORT INFORMATION
  Report Type: 
  Country: None (occurrence: None)
  Receive Date: 20041019
  Receipt Date: 20041019
  Transmission Date: 20050328
  Serious: Yes (Hospitalization)
  Sender: FDA-Public Use
  Company Number: None

PATIENT
  Sex: Female
  Weight: 63.6 kg

DRUGS (17)
  1. BEXTRA [Suspect]
     Indication: OSTEOARTHRITIS
     Dosage: DAILY ORAL
     Route: 048
     Dates: start: 20041007, end: 20041014
  2. HYDROCHLOROTHIAZIDE [Concomitant]
  3. LEVOXYL [Concomitant]
  4. BEXTRA [Concomitant]
  5. EFFEXOR [Concomitant]
  6. NASONEX [Concomitant]
  7. METOPROLOL SUCCINATE [Concomitant]
  8. DOCUSATE [Concomitant]
  9. MONOPRIL [Concomitant]
  10. DEPAKOTE [Concomitant]
  11. IMDUR [Concomitant]
  12. ASPIRIN [Concomitant]
  13. LIPITOR [Concomitant]
  14. ALLEGRA [Concomitant]
  15. PLAVIX [Concomitant]
  16. MILK OF MAGNESIA TAB [Concomitant]
  17. NITROGLYCERIN [Concomitant]

REACTIONS (3)
  - GASTRIC ULCER [None]
  - GASTROINTESTINAL HAEMORRHAGE [None]
  - THROMBOSIS [None]
